FAERS Safety Report 19971429 (Version 3)
Quarter: 2024Q3

REPORT INFORMATION
  Report Type: Report from Study
  Country: US (occurrence: US)
  Receive Date: 20211019
  Receipt Date: 20240925
  Transmission Date: 20241016
  Serious: Yes (Other)
  Sender: GLAXOSMITHKLINE
  Company Number: US-GLAXOSMITHKLINE-US2021AMR214371

PATIENT
  Sex: Female

DRUGS (5)
  1. NIRAPARIB [Suspect]
     Active Substance: NIRAPARIB
     Indication: Ovarian cancer
     Dosage: 2 DF, QD (100 MG), TAKES IT AT BEDTIME
     Route: 048
     Dates: start: 20210709, end: 20211029
  2. LISINOPRIL [Concomitant]
     Active Substance: LISINOPRIL
     Indication: Hypertension
     Dosage: UNK
  3. LISINOPRIL [Concomitant]
     Active Substance: LISINOPRIL
     Indication: Heart rate increased
  4. XARELTO [Concomitant]
     Active Substance: RIVAROXABAN
     Indication: Hypertension
     Dosage: UNK
  5. XARELTO [Concomitant]
     Active Substance: RIVAROXABAN
     Indication: Heart rate increased

REACTIONS (4)
  - Haematochezia [Not Recovered/Not Resolved]
  - Recurrent cancer [Unknown]
  - Haemoptysis [Not Recovered/Not Resolved]
  - Product dose omission in error [Unknown]
